FAERS Safety Report 14516920 (Version 1)
Quarter: 2018Q1

REPORT INFORMATION
  Report Type: Report from Study
  Country: None (occurrence: BR)
  Receive Date: 20180212
  Receipt Date: 20180212
  Transmission Date: 20180509
  Serious: Yes (Other)
  Sender: FDA-Public Use
  Company Number: BR-ABBVIE-18K-020-2250611-00

PATIENT
  Age: 48 Year
  Sex: Female
  Weight: 72 kg

DRUGS (1)
  1. HUMIRA [Suspect]
     Active Substance: ADALIMUMAB
     Indication: ANKYLOSING SPONDYLITIS
     Route: 058
     Dates: start: 20170828

REACTIONS (8)
  - Photophobia [Recovering/Resolving]
  - Vitreous floaters [Unknown]
  - Lacrimation increased [Unknown]
  - Eye pain [Recovering/Resolving]
  - Eye injury [Recovering/Resolving]
  - Vision blurred [Unknown]
  - Weight increased [Recovering/Resolving]
  - Weight loss poor [Unknown]

NARRATIVE: CASE EVENT DATE: 20180204
